FAERS Safety Report 23712702 (Version 1)
Quarter: 2024Q2

REPORT INFORMATION
  Report Type: Spontaneous
  Country: US (occurrence: None)
  Receive Date: 20240405
  Receipt Date: 20240405
  Transmission Date: 20240716
  Serious: No
  Sender: FDA-Public Use
  Company Number: None

PATIENT
  Age: 60 Year
  Sex: Female

DRUGS (1)
  1. FLUOROURACIL [Suspect]
     Active Substance: FLUOROURACIL
     Indication: Rectal cancer
     Dates: start: 20120726, end: 20120727

REACTIONS (4)
  - Drug monitoring procedure not performed [None]
  - Dose calculation error [None]
  - Overdose [None]
  - Dihydropyrimidine dehydrogenase deficiency [None]

NARRATIVE: CASE EVENT DATE: 20120802
